FAERS Safety Report 23262797 (Version 1)
Quarter: 2023Q4

REPORT INFORMATION
  Report Type: Spontaneous
  Country: US (occurrence: None)
  Receive Date: 20231204
  Receipt Date: 20231204
  Transmission Date: 20240110
  Serious: No
  Sender: FDA-Public Use
  Company Number: None

PATIENT
  Age: 61 Year
  Sex: Female
  Weight: 85.5 kg

DRUGS (7)
  1. MEGESTROL [Suspect]
     Active Substance: MEGESTROL
     Indication: Endometrial atrophy
     Dosage: OTHER QUANTITY : 60 TABLET(S);?FREQUENCY : TWICE A DAY;?
     Route: 048
     Dates: start: 20231127
  2. MEGESTROL [Suspect]
     Active Substance: MEGESTROL
     Indication: Endometrial thickening
  3. MEGESTROL [Suspect]
     Active Substance: MEGESTROL
     Indication: Uterine haemorrhage
  4. Amlodypine [Concomitant]
  5. MEGASTROL [Concomitant]
  6. ROSUVASTATIN [Concomitant]
     Active Substance: ROSUVASTATIN
  7. VITAMIN D3 [Concomitant]
     Active Substance: CHOLECALCIFEROL

REACTIONS (5)
  - Migraine [None]
  - Fatigue [None]
  - Dyspnoea [None]
  - Palpitations [None]
  - Feeling of body temperature change [None]

NARRATIVE: CASE EVENT DATE: 20231203
